FAERS Safety Report 17901666 (Version 1)
Quarter: 2020Q2

REPORT INFORMATION
  Report Type: Report from Study
  Country: FR (occurrence: FR)
  Receive Date: 20200616
  Receipt Date: 20200616
  Transmission Date: 20200714
  Serious: Yes (Death)
  Sender: FDA-Public Use
  Company Number: FR-PFIZER INC-2020228678

PATIENT
  Sex: Female

DRUGS (2)
  1. CAPECITABINE. [Suspect]
     Active Substance: CAPECITABINE
     Indication: INVASIVE BREAST CARCINOMA
     Dosage: 825 MG/M2, 2X/DAY (TWO TIMES PER DAY FOR 14 DAYS (DC) EVERY 3 WEEKS FOR 6 CYCLES AFTER SURGERY)
     Route: 048
  2. DOCETAXEL. [Suspect]
     Active Substance: DOCETAXEL
     Indication: INVASIVE BREAST CARCINOMA
     Dosage: 75 MG/M2, 2X/DAY (TWO TIMES PER DAY FOR 14 DAYS (DC) EVERY 3 WEEKS FOR 6 CYCLES AFTER SURGERY)
     Route: 042

REACTIONS (1)
  - Death [Fatal]
